FAERS Safety Report 25469562 (Version 1)
Quarter: 2025Q2

REPORT INFORMATION
  Report Type: Spontaneous
  Country: CA (occurrence: CA)
  Receive Date: 20250623
  Receipt Date: 20250623
  Transmission Date: 20250717
  Serious: Yes (Other)
  Sender: ANI
  Company Number: CA-ANIPHARMA-2025-CA-001997

PATIENT
  Age: 77 Year
  Sex: Female

DRUGS (10)
  1. CANDESARTAN CILEXETIL [Suspect]
     Active Substance: CANDESARTAN CILEXETIL
     Indication: Migraine
  2. VITAMIN D3 [Concomitant]
     Active Substance: CHOLECALCIFEROL
  3. CAMZYOS [Suspect]
     Active Substance: MAVACAMTEN
     Route: 048
  4. ELETRIPTAN [Concomitant]
     Active Substance: ELETRIPTAN
  5. ESOMEPRAZOLE [Concomitant]
     Active Substance: ESOMEPRAZOLE
  6. BUDESONIDE\FORMOTEROL FUMARATE [Concomitant]
     Active Substance: BUDESONIDE\FORMOTEROL FUMARATE
  7. FOLIC ACID [Concomitant]
     Active Substance: FOLIC ACID
  8. METHOTREXATE [Concomitant]
     Active Substance: METHOTREXATE
  9. PERINDOPRIL [Concomitant]
     Active Substance: PERINDOPRIL
  10. PROPRANOLOL HYDROCHLORIDE [Concomitant]
     Active Substance: PROPRANOLOL HYDROCHLORIDE

REACTIONS (19)
  - Fatigue [Unknown]
  - Gait disturbance [Unknown]
  - Hypersensitivity [Unknown]
  - Hypotension [Unknown]
  - Influenza [Unknown]
  - Labyrinthitis [Unknown]
  - Left ventricular outflow tract gradient increased [Unknown]
  - Lymphadenopathy [Unknown]
  - Migraine [Unknown]
  - Nausea [Unknown]
  - Abdominal pain upper [Unknown]
  - Off label use [Unknown]
  - Axillary pain [Unknown]
  - Blood pressure systolic increased [Unknown]
  - COVID-19 [Unknown]
  - Cough [Unknown]
  - Decreased activity [Unknown]
  - Dizziness [Unknown]
  - Dyspnoea [Unknown]
